FAERS Safety Report 5895625-0 (Version None)
Quarter: 2008Q3

REPORT INFORMATION
  Report Type: 
  Country: None (occurrence: None)
  Receive Date: 20080924
  Receipt Date: 20080519
  Transmission Date: 20090109
  Serious: Yes (Other)
  Sender: FDA-Public Use
  Company Number: US-ASTRAZENECA-2006UW21911

PATIENT
  Sex: Female
  Weight: 72.6 kg

DRUGS (4)
  1. SEROQUEL [Suspect]
     Indication: SCHIZOPHRENIA
     Dosage: 100  MG, 300 MG
     Route: 048
     Dates: start: 19980101
  2. CLOZAPINE [Concomitant]
  3. RISPERDAL [Concomitant]
  4. ZYPREXA [Concomitant]
     Dates: start: 20020101, end: 20050101

REACTIONS (3)
  - DIABETIC COMA [None]
  - OVERDOSE [None]
  - TYPE 2 DIABETES MELLITUS [None]
